FAERS Safety Report 8287471-8 (Version None)
Quarter: 2012Q2

REPORT INFORMATION
  Report Type: 
  Country: None (occurrence: None)
  Receive Date: 20120416
  Receipt Date: 20120409
  Transmission Date: 20120825
  Serious: Yes (Other)
  Sender: FDA-Public Use
  Company Number: US-AMGEN-USASP2012022483

PATIENT
  Sex: Male

DRUGS (10)
  1. PREDNISONE TAB [Concomitant]
     Dosage: UNK
  2. LASIX [Concomitant]
     Dosage: UNK
  3. EPOGEN [Suspect]
     Indication: RENAL FAILURE CHRONIC
     Dosage: 5200 IU, 3 TIMES/WK
     Dates: start: 20111205, end: 20120314
  4. CELLCEPT [Concomitant]
     Dosage: UNK
  5. NORVASC [Concomitant]
     Dosage: UNK
  6. LEVEMIR [Concomitant]
     Dosage: UNK
  7. VENOFER [Concomitant]
     Dosage: UNK
  8. DOXYCYCLINE [Concomitant]
     Dosage: UNK
  9. METOPROLOL [Concomitant]
     Dosage: UNK
  10. CALCIUM WITH VITAMIN D             /00944201/ [Concomitant]
     Dosage: UNK

REACTIONS (3)
  - DRUG INEFFECTIVE [None]
  - BONE MARROW FAILURE [None]
  - BLOOD PRODUCT TRANSFUSION DEPENDENT [None]
